FAERS Safety Report 14593478 (Version 4)
Quarter: 2018Q3

REPORT INFORMATION
  Report Type: Report from Study
  Country: BR (occurrence: BR)
  Receive Date: 20180302
  Receipt Date: 20180911
  Transmission Date: 20181010
  Serious: Yes (Hospitalization)
  Sender: FDA-Public Use
  Company Number: BR-BAYER-2018-036871

PATIENT
  Age: 68 Year
  Sex: Male

DRUGS (3)
  1. NEXAVAR [Suspect]
     Active Substance: SORAFENIB
     Indication: LUNG NEOPLASM MALIGNANT
     Dosage: UNK
     Dates: start: 201708
  2. NEXAVAR [Suspect]
     Active Substance: SORAFENIB
     Indication: HEPATOCELLULAR CARCINOMA
     Dosage: 800 MG, QD
     Dates: start: 20180201
  3. MYCOPHENOLATE MOFETIL. [Concomitant]
     Active Substance: MYCOPHENOLATE MOFETIL
     Indication: LIVER TRANSPLANT
     Dosage: 2 DF, QD

REACTIONS (11)
  - Inappropriate schedule of drug administration [None]
  - Blister [Not Recovered/Not Resolved]
  - Decreased appetite [None]
  - Tooth infection [Recovered/Resolved]
  - Weight decreased [None]
  - Ageusia [None]
  - Abscess oral [Recovered/Resolved]
  - Pulpitis dental [Recovered/Resolved]
  - Face oedema [Recovered/Resolved]
  - Product supply issue [None]
  - Diarrhoea [None]

NARRATIVE: CASE EVENT DATE: 201708
